FAERS Safety Report 14899758 (Version 2)
Quarter: 2018Q2

REPORT INFORMATION
  Report Type: Spontaneous
  Country: US (occurrence: US)
  Receive Date: 20180516
  Receipt Date: 20180521
  Transmission Date: 20180711
  Serious: No
  Sender: FDA-Public Use
  Company Number: US-009507513-1805USA004120

PATIENT
  Sex: Female

DRUGS (1)
  1. NEXPLANON [Suspect]
     Active Substance: ETONOGESTREL
     Dosage: 1 ROD/ 3 YEARS

REACTIONS (3)
  - Complication of device removal [Recovered/Resolved]
  - Complication associated with device [Recovered/Resolved]
  - Device deployment issue [Recovered/Resolved]
